FAERS Safety Report 23835954 (Version 2)
Quarter: 2024Q2

REPORT INFORMATION
  Report Type: Spontaneous
  Country: FR (occurrence: FR)
  Receive Date: 20240509
  Receipt Date: 20240624
  Transmission Date: 20240716
  Serious: Yes (Hospitalization, Other)
  Sender: FDA-Public Use
  Company Number: FR-Accord-423408

PATIENT
  Age: 53 Year
  Sex: Male

DRUGS (3)
  1. CISPLATIN [Suspect]
     Active Substance: CISPLATIN
     Indication: Chemotherapy
     Dosage: 4 CYCLES OF CHEMOTHERAPY COMBINING CIS-PLATINUM AND PEMETREXED
  2. PEMETREXED [Suspect]
     Active Substance: PEMETREXED
     Indication: Lung adenocarcinoma stage IV
     Dosage: 4 CYCLES?500 MG/M2 (FIRST CYCLE OF MAINTENANCE CHEMOTHERAPY)
  3. FILGRASTIM [Concomitant]
     Active Substance: FILGRASTIM
     Indication: Pancytopenia
     Dosage: 5 MICROGRAM/KILOGRAM

REACTIONS (2)
  - Pancytopenia [Unknown]
  - Visceral leishmaniasis [Recovered/Resolved]
